FAERS Safety Report 13348086 (Version 1)
Quarter: 2017Q1

REPORT INFORMATION
  Report Type: Report from Study
  Country: None (occurrence: AR)
  Receive Date: 20170318
  Receipt Date: 20170318
  Transmission Date: 20170428
  Serious: Yes (Hospitalization)
  Sender: FDA-Public Use
  Company Number: AR-ABBVIE-17P-007-1906705-00

PATIENT
  Age: 69 Year
  Sex: Female

DRUGS (1)
  1. HUMIRA [Suspect]
     Active Substance: ADALIMUMAB
     Indication: RHEUMATOID ARTHRITIS
     Route: 058
     Dates: start: 20120201

REACTIONS (3)
  - Pulmonary oedema [Recovering/Resolving]
  - Cardiac pacemaker insertion [Recovered/Resolved]
  - Skin infection [Recovering/Resolving]

NARRATIVE: CASE EVENT DATE: 201701
